FAERS Safety Report 21999768 (Version 1)
Quarter: 2023Q1

REPORT INFORMATION
  Report Type: Spontaneous
  Country: GB (occurrence: GB)
  Receive Date: 20230216
  Receipt Date: 20230216
  Transmission Date: 20230417
  Serious: Yes (Death, Hospitalization, Other)
  Sender: FDA-Public Use
  Company Number: GB-AMERICAN REGENT INC-2023000359

PATIENT
  Age: 49 Year
  Sex: Female

DRUGS (20)
  1. VENOFER [Suspect]
     Active Substance: IRON SUCROSE
     Indication: Product used for unknown indication
     Dosage: 100 MILLIGRAM ONCE WEEKLY AFTER DIALYSIS
     Route: 042
  2. ASPIRIN [Concomitant]
     Active Substance: ASPIRIN
     Indication: Product used for unknown indication
     Dosage: 75 MILLIGRAM, 1 IN 1 D
     Route: 065
  3. ATORVASTATIN [Concomitant]
     Active Substance: ATORVASTATIN
     Indication: Product used for unknown indication
     Dosage: EVERY NIGHT (80 MILLIGRAM, 1 IN 1 D)
     Route: 065
  4. CARBOXYMETHYLCELLULOSE [Concomitant]
     Active Substance: CARBOXYMETHYLCELLULOSE
     Indication: Product used for unknown indication
     Dosage: BOTH EYES (1 GTT, AS REQUIRED)
     Route: 047
  5. CHLORPHENIRAMINE MALEATE [Concomitant]
     Active Substance: CHLORPHENIRAMINE MALEATE
     Indication: Product used for unknown indication
     Dosage: 4 MILLIGRAM, 3 IN 1 D
     Route: 065
  6. CLOPIDOGREL [Concomitant]
     Active Substance: CLOPIDOGREL BISULFATE
     Indication: Product used for unknown indication
     Dosage: EVERY MORNING (75 MILLIGRAM, 1 IN 1 D)
     Route: 065
  7. FAMOTIDINE [Concomitant]
     Active Substance: FAMOTIDINE
     Indication: Product used for unknown indication
     Dosage: EVERY MORNING (20 MILLIGRAM, 1 IN 1 D)
     Route: 065
  8. LIDOCAINE [Concomitant]
     Active Substance: LIDOCAINE
     Indication: Product used for unknown indication
     Dosage: UNK
     Route: 062
  9. LOPERAMIDE [Concomitant]
     Active Substance: LOPERAMIDE
     Indication: Product used for unknown indication
     Dosage: 2 MILLIGRAM, 2 IN 1 D
     Route: 065
  10. MIDAZOLAM [Concomitant]
     Active Substance: MIDAZOLAM
     Indication: Product used for unknown indication
     Dosage: 10 MILLIGRAM, 1 IN 1 AS REQUIRED
     Route: 030
  11. NYSTATIN [Concomitant]
     Active Substance: NYSTATIN
     Indication: Product used for unknown indication
     Dosage: 1 MILLILITER, 1 IN 1 D
     Route: 048
  12. OMEPRAZOLE [Concomitant]
     Active Substance: OMEPRAZOLE
     Indication: Product used for unknown indication
     Dosage: EVERY MORNING (40 MILLIGRAM, 1 IN 1 D)
     Route: 065
  13. ONDANSETRON [Concomitant]
     Active Substance: ONDANSETRON
     Indication: Product used for unknown indication
     Dosage: IV/IM/PO 4 MILLIGRAM TDS PRN (4 MG, AS REQUIRED)
     Route: 065
  14. OXYCODONE [Concomitant]
     Active Substance: OXYCODONE
     Indication: Product used for unknown indication
     Dosage: 5MG/5ML ORAL SOLUTION, 5-10MG QDS PRN AND 10MG 12 HOUR PROLONGED RELEASE TABLETS, 10MG BD
     Route: 065
  15. ACETAMINOPHEN [Concomitant]
     Active Substance: ACETAMINOPHEN
     Indication: Product used for unknown indication
     Dosage: TABS/SOLUBLE TABS/IV, QDS
     Route: 065
  16. SEVELAMER [Concomitant]
     Active Substance: SEVELAMER
     Indication: Product used for unknown indication
     Dosage: 800 MILLIGRAM, 3 IN 1 D
     Route: 065
  17. RENAVIT [Concomitant]
     Indication: Product used for unknown indication
     Dosage: EVERY MORNING
     Route: 065
  18. POLYETHYLENE GLYCOLS [Concomitant]
     Active Substance: POLYETHYLENE GLYCOLS
     Indication: Product used for unknown indication
     Dosage: 1 SACHET BD (1 SACHET, 2 IN 1 D)
     Route: 065
  19. DOXYCYCLINE [Concomitant]
     Active Substance: DOXYCYCLINE
     Indication: Product used for unknown indication
     Dosage: 100 MILLIGRAM, 2 IN 1 D
     Route: 065
  20. SODIUM CHLORIDE [Concomitant]
     Active Substance: SODIUM CHLORIDE
     Indication: Product used for unknown indication
     Dosage: 5 MILLILITER, 4 IN 1 D
     Route: 065

REACTIONS (4)
  - Death [Fatal]
  - Ocular hyperaemia [Unknown]
  - Urticaria [Unknown]
  - Eye pruritus [Unknown]

NARRATIVE: CASE EVENT DATE: 20230101
